FAERS Safety Report 9342752 (Version 4)
Quarter: 2013Q3

REPORT INFORMATION
  Report Type: Spontaneous
  Country: US (occurrence: None)
  Receive Date: 20130607
  Receipt Date: 20130906
  Transmission Date: 20140515
  Serious: Yes (Hospitalization)
  Sender: FDA-Public Use
  Company Number: 148383

PATIENT
  Age: 58 Year
  Sex: Female
  Weight: 52 kg

DRUGS (1)
  1. LEUCOVORIN CALCIUM FOR INJ. 50MG-BEDFORD LABS, INC. [Suspect]
     Indication: COLORECTAL CANCER METASTATIC
     Dosage: 400MG/M2 INTRAVENOUS ON DAY ONE
     Route: 042
     Dates: start: 20121009

REACTIONS (6)
  - Urinary tract obstruction [None]
  - Dizziness [None]
  - Malaise [None]
  - Hypotension [None]
  - Sinus tachycardia [None]
  - Ureteric stenosis [None]
